FAERS Safety Report 10081204 (Version 1)
Quarter: 2014Q2

REPORT INFORMATION
  Report Type: Spontaneous
  Country: US (occurrence: US)
  Receive Date: 20140416
  Receipt Date: 20140416
  Transmission Date: 20141212
  Serious: No
  Sender: FDA-Public Use
  Company Number: US-PFIZER INC-2014103544

PATIENT
  Age: 20 Year
  Sex: Female
  Weight: 51.25 kg

DRUGS (5)
  1. XELJANZ [Suspect]
     Indication: RHEUMATOID ARTHRITIS
     Dosage: 5 MG, TWICE DAILY
     Route: 048
     Dates: start: 20140201
  2. PROZAC [Concomitant]
     Dosage: UNK
  3. CLARITIN-D [Concomitant]
     Dosage: UNK
  4. IBUPROFEN [Concomitant]
     Dosage: UNK
  5. SPRINTEC [Concomitant]
     Dosage: UNK

REACTIONS (1)
  - Hyperaesthesia [Not Recovered/Not Resolved]
